FAERS Safety Report 5456390-4 (Version None)
Quarter: 2007Q3

REPORT INFORMATION
  Report Type: 
  Country: None (occurrence: None)
  Receive Date: 20070918
  Receipt Date: 20070911
  Transmission Date: 20080115
  Serious: Yes (Other)
  Sender: FDA-Public Use
  Company Number: PHBS2007BE14952

PATIENT
  Age: 30 Year
  Sex: Female

DRUGS (3)
  1. METHYLERGOMETRINE MALEATE [Suspect]
     Dosage: TWICE
     Route: 042
  2. METHYLERGOMETRINE MALEATE [Suspect]
     Dosage: ONCE
     Route: 048
  3. ETILEFRINE [Suspect]
     Indication: HYPOTENSION
     Route: 048

REACTIONS (10)
  - COLOUR BLINDNESS [None]
  - DRUG INTERACTION [None]
  - MACULAR DEGENERATION [None]
  - MACULOPATHY [None]
  - PHOTOPSIA [None]
  - REFLEXES ABNORMAL [None]
  - RETINAL VASCULAR DISORDER [None]
  - SCOTOMA [None]
  - VISION BLURRED [None]
  - VITREOUS FLOATERS [None]
